FAERS Safety Report 4299634-7 (Version None)
Quarter: 2004Q1

REPORT INFORMATION
  Report Type: 
  Country: None (occurrence: None)
  Receive Date: 20040217
  Receipt Date: 20040217
  Transmission Date: 20041129
  Serious: Yes (Other)
  Sender: FDA-Public Use
  Company Number: None

PATIENT
  Sex: Female
  Weight: 72.5755 kg

DRUGS (5)
  1. LISINOPRIL [Suspect]
     Indication: HYPERTENSION
     Dosage: 20 MG PO QD
     Route: 048
     Dates: start: 20021105
  2. INDOMETHACIN [Concomitant]
  3. BUMETANIDE [Concomitant]
  4. ALLOPURINOL [Concomitant]
  5. PRILOSEC [Concomitant]

REACTIONS (1)
  - ANGIONEUROTIC OEDEMA [None]
